FAERS Safety Report 5752153-0 (Version None)
Quarter: 2008Q2

REPORT INFORMATION
  Report Type: 
  Country: None (occurrence: None)
  Receive Date: 20080527
  Receipt Date: 20080508
  Transmission Date: 20081010
  Serious: Yes (Hospitalization)
  Sender: FDA-Public Use
  Company Number: MEDI-0006796

PATIENT
  Age: 53 Year
  Sex: Female

DRUGS (20)
  1. ETHYOL [Suspect]
     Indication: HEAD AND NECK CANCER
     Dosage: 500 MG, 5 IN 5 D, SUBCUTANEOUS
     Route: 058
     Dates: start: 20080417, end: 20080422
  2. ETHYOL [Suspect]
     Indication: HEAD AND NECK CANCER
     Dosage: 500 MG, 5 IN 5 D, SUBCUTANEOUS
     Route: 058
     Dates: start: 20080423, end: 20080424
  3. RADIATION THERAPY [Concomitant]
  4. CISPLATIN [Concomitant]
  5. COMPAZINE [Concomitant]
  6. ATIVAN [Concomitant]
  7. MYCELEX [Concomitant]
  8. MEDROL [Concomitant]
  9. DIFLUCAN [Concomitant]
  10. CLARITIN [Concomitant]
  11. FLEXERIL [Concomitant]
  12. ZOLOFT [Concomitant]
  13. LOTREL [Concomitant]
  14. ULTRAM [Concomitant]
  15. AMEND [Concomitant]
  16. OXYCODONE HCL [Concomitant]
  17. LISINOPRIL [Concomitant]
  18. PERIGARD [Concomitant]
  19. MOTRIN [Concomitant]
  20. VICODIN [Concomitant]

REACTIONS (6)
  - BLOOD PRESSURE DECREASED [None]
  - DEHYDRATION [None]
  - FUNGAL INFECTION [None]
  - PYREXIA [None]
  - RASH [None]
  - URINARY TRACT INFECTION [None]
